FAERS Safety Report 8379870 (Version 2)
Quarter: 2013Q1

REPORT INFORMATION
  Report Type: Report from Study
  Country: US (occurrence: US)
  Receive Date: 20120129
  Receipt Date: 20130131
  Transmission Date: 20140127
  Serious: No
  Sender: FDA-Public Use
  Company Number: US-ABBOTT-11P-163-0844997-00

PATIENT
  Age: 61 Year
  Sex: Male

DRUGS (8)
  1. HUMIRA [Suspect]
     Indication: CROHN^S DISEASE
     Dosage: 4 INJECTIONS, 80 MG PART OF LOADING DOSE
     Route: 058
     Dates: start: 20110708, end: 20110708
  2. HUMIRA [Suspect]
     Dosage: 40 MG EOW
     Dates: start: 20110807
  3. PENTASA [Concomitant]
     Indication: PRODUCT USED FOR UNKNOWN INDICATION
     Dosage: 10 TABLETS PER DAY
  4. ENTOCORT [Concomitant]
     Indication: PRODUCT USED FOR UNKNOWN INDICATION
  5. ATENOLOL [Concomitant]
     Indication: PRODUCT USED FOR UNKNOWN INDICATION
  6. UROCIT-K [Concomitant]
     Indication: NEPHROLITHIASIS
     Dosage: 15 MEQ (1620 MG)
  7. LOMOTIL [Concomitant]
     Indication: PRODUCT USED FOR UNKNOWN INDICATION
  8. MEDICATION THAT IS COMBINATION OF T3 AND T4 [Concomitant]
     Indication: THYROID DISORDER

REACTIONS (10)
  - Nausea [Recovering/Resolving]
  - Vomiting [Recovering/Resolving]
  - Hyperhidrosis [Recovering/Resolving]
  - Cardiac fibrillation [Not Recovered/Not Resolved]
  - Influenza like illness [Unknown]
  - Arthralgia [Unknown]
  - Feeling abnormal [Unknown]
  - Arthralgia [Not Recovered/Not Resolved]
  - Myalgia [Not Recovered/Not Resolved]
  - Drug dose omission [Unknown]
